FAERS Safety Report 13447481 (Version 4)
Quarter: 2017Q3

REPORT INFORMATION
  Report Type: Spontaneous
  Country: US (occurrence: US)
  Receive Date: 20170417
  Receipt Date: 20170728
  Transmission Date: 20171127
  Serious: Yes (Hospitalization, Other)
  Sender: FDA-Public Use
  Company Number: US-PFIZER INC-2017158296

PATIENT
  Age: 20 Year
  Sex: Male

DRUGS (2)
  1. LEVOFLOXACIN. [Suspect]
     Active Substance: LEVOFLOXACIN
     Indication: EPIDIDYMITIS
     Dosage: 750 MG, 1X/DAY (10-DAY COURSE) (ONCE DAILY)
  2. INSULIN [Concomitant]
     Active Substance: INSULIN NOS
     Indication: TYPE 1 DIABETES MELLITUS
     Dosage: 4 UNITS BEFORE BREAKFAST, 8 UNITS BEFORE LUNCH AND 11 UNITS BEFORE DINNER, ALSO RECEIVED 12 UNITS OF
     Route: 058

REACTIONS (1)
  - Neuropathy peripheral [Unknown]
